FAERS Safety Report 23399106 (Version 2)
Quarter: 2024Q1

REPORT INFORMATION
  Report Type: Report from Study
  Country: US (occurrence: US)
  Receive Date: 20240113
  Receipt Date: 20240307
  Transmission Date: 20240410
  Serious: Yes (Other)
  Sender: FDA-Public Use
  Company Number: US-ABBVIE-5583666

PATIENT
  Sex: Female

DRUGS (1)
  1. HUMIRA [Suspect]
     Active Substance: ADALIMUMAB
     Indication: Rheumatoid arthritis
     Dosage: FORM STRENGTH: 40 MG?CITRATE FREE
     Route: 058
     Dates: start: 20211213

REACTIONS (8)
  - Sinus operation [Recovering/Resolving]
  - Hiatus hernia [Recovering/Resolving]
  - Dysphagia [Unknown]
  - Decreased appetite [Unknown]
  - Feeding disorder [Unknown]
  - Dyspepsia [Unknown]
  - Oesophageal disorder [Not Recovered/Not Resolved]
  - Illness [Unknown]
